FAERS Safety Report 8065465-5 (Version None)
Quarter: 2011Q4

REPORT INFORMATION
  Report Type: 
  Country: None (occurrence: None)
  Receive Date: 20111221
  Receipt Date: 20110802
  Transmission Date: 20120403
  Serious: Yes (Disabling)
  Sender: FDA-Public Use
  Company Number: PHHY2011US39766

PATIENT
  Age: 78 Year
  Sex: Male
  Weight: 84.5 kg

DRUGS (6)
  1. OMEPRAZOLE [Concomitant]
  2. EXJADE [Suspect]
     Indication: NEOPLASM
     Dosage: 1500 MG, QD, ORAL
     Route: 048
     Dates: start: 20080722
  3. SINEMET [Concomitant]
  4. ASPIRIN [Concomitant]
  5. GEMFIBROZIL [Concomitant]
  6. NORTRIPTYLINE HCL [Concomitant]

REACTIONS (2)
  - DIARRHOEA [None]
  - ABDOMINAL DISTENSION [None]
